FAERS Safety Report 21440102 (Version 2)
Quarter: 2023Q1

REPORT INFORMATION
  Report Type: Spontaneous
  Country: US (occurrence: US)
  Receive Date: 20221011
  Receipt Date: 20230329
  Transmission Date: 20230417
  Serious: No
  Sender: FDA-Public Use
  Company Number: US-DSJP-DSU-2022-135738AA

PATIENT
  Sex: Female

DRUGS (1)
  1. ENHERTU [Suspect]
     Active Substance: FAM-TRASTUZUMAB DERUXTECAN-NXKI
     Indication: Breast cancer metastatic
     Dosage: UNK
     Route: 065

REACTIONS (5)
  - Feeling abnormal [Recovering/Resolving]
  - Nausea [Unknown]
  - Fatigue [Unknown]
  - Alopecia [Recovering/Resolving]
  - Muscle spasms [Unknown]
